FAERS Safety Report 7822273-5 (Version None)
Quarter: 2011Q4

REPORT INFORMATION
  Report Type: 
  Country: None (occurrence: None)
  Receive Date: 20111018
  Receipt Date: 20110127
  Transmission Date: 20120403
  Serious: No
  Sender: FDA-Public Use
  Company Number: US-ASTRAZENECA-2011SE05154

PATIENT
  Age: 48 Year
  Sex: Female
  Weight: 135.2 kg

DRUGS (9)
  1. METFORMIN HCL [Concomitant]
  2. ALBUTEROL [Concomitant]
  3. ABILIFY [Concomitant]
  4. LIPITOR [Concomitant]
  5. IMDUR [Concomitant]
  6. VALTREX [Concomitant]
  7. TRAZODONE HCL [Concomitant]
  8. SYMBICORT [Suspect]
     Route: 055
  9. ASPIRIN [Concomitant]

REACTIONS (3)
  - DIABETES MELLITUS [None]
  - TREATMENT NONCOMPLIANCE [None]
  - BREAST DISCOMFORT [None]
